FAERS Safety Report 15489989 (Version 1)
Quarter: 2018Q4

REPORT INFORMATION
  Report Type: Spontaneous
  Country: US (occurrence: US)
  Receive Date: 20181011
  Receipt Date: 20181011
  Transmission Date: 20190205
  Serious: Yes (Other)
  Sender: FDA-Public Use
  Company Number: US-CELGENEUS-USA-20181003100

PATIENT
  Sex: Female

DRUGS (1)
  1. REVLIMID [Suspect]
     Active Substance: LENALIDOMIDE
     Indication: PLASMA CELL MYELOMA
     Dosage: 10 MILLIGRAM
     Route: 048
     Dates: start: 20180301

REACTIONS (6)
  - Adverse drug reaction [Unknown]
  - Muscle twitching [Unknown]
  - Dry mouth [Unknown]
  - Muscle spasms [Unknown]
  - Skin exfoliation [Unknown]
  - Epigastric discomfort [Unknown]
